FAERS Safety Report 7825306-5 (Version None)
Quarter: 2011Q4

REPORT INFORMATION
  Report Type: 
  Country: None (occurrence: None)
  Receive Date: 20111019
  Receipt Date: 20111012
  Transmission Date: 20120403
  Serious: Yes (Other)
  Sender: FDA-Public Use
  Company Number: JP-GLAXOSMITHKLINE-B0747511A

PATIENT
  Sex: Male

DRUGS (6)
  1. NITRAZEPAM [Concomitant]
     Indication: INSOMNIA
     Route: 048
  2. LAMICTAL [Suspect]
     Indication: BIPOLAR I DISORDER
     Dosage: 50MG PER DAY
     Route: 048
     Dates: start: 20110711, end: 20110904
  3. DEPAKENE [Concomitant]
     Indication: BIPOLAR I DISORDER
     Dosage: 800MG PER DAY
     Route: 048
  4. LITHIUM CARBONATE [Concomitant]
     Indication: BIPOLAR I DISORDER
     Dosage: 800MG PER DAY
     Route: 048
  5. VALPROATE SODIUM [Concomitant]
     Indication: EPILEPSY
     Dosage: 800MG PER DAY
     Route: 048
  6. SEROQUEL [Concomitant]
     Indication: BIPOLAR I DISORDER
     Dosage: 100MG PER DAY
     Route: 048

REACTIONS (1)
  - EPILEPSY [None]
